FAERS Safety Report 13520064 (Version 2)
Quarter: 2017Q2

REPORT INFORMATION
  Report Type: Report from Study
  Country: None (occurrence: CA)
  Receive Date: 20170506
  Receipt Date: 20170531
  Transmission Date: 20170830
  Serious: Yes (Death)
  Sender: FDA-Public Use
  Company Number: CA-ABBVIE-17K-028-1966822-00

PATIENT
  Age: 72 Year
  Sex: Male

DRUGS (1)
  1. HUMIRA [Suspect]
     Active Substance: ADALIMUMAB
     Indication: ANKYLOSING SPONDYLITIS
     Route: 058
     Dates: start: 20090318

REACTIONS (3)
  - Mast cell activation syndrome [Unknown]
  - Disease risk factor [Unknown]
  - Infarction [Fatal]

NARRATIVE: CASE EVENT DATE: 201611
